FAERS Safety Report 6822112-5 (Version None)
Quarter: 2010Q3

REPORT INFORMATION
  Report Type: 
  Country: None (occurrence: None)
  Receive Date: 20100706
  Receipt Date: 20100706
  Transmission Date: 20110219
  Serious: Yes (Hospitalization)
  Sender: FDA-Public Use
  Company Number: None

PATIENT
  Age: 69 Year
  Sex: Male
  Weight: 60.9 kg

DRUGS (1)
  1. ITRACONAZOLE [Suspect]
     Indication: ASPERGILLOSIS
     Dosage: 200 MG BID PO
     Route: 048
     Dates: start: 20091103, end: 20100414

REACTIONS (4)
  - ACUTE MYOCARDIAL INFARCTION [None]
  - CARDIAC FAILURE CONGESTIVE [None]
  - CONDITION AGGRAVATED [None]
  - RESPIRATORY FAILURE [None]
